FAERS Safety Report 8739741 (Version 2)
Quarter: 2013Q4

REPORT INFORMATION
  Report Type: Spontaneous
  Country: US (occurrence: US)
  Receive Date: 20120823
  Receipt Date: 20131101
  Transmission Date: 20140711
  Serious: No
  Sender: FDA-Public Use
  Company Number: US-009507513-1208USA000414

PATIENT
  Age: 68 Year
  Sex: Female

DRUGS (2)
  1. TRUSOPT [Suspect]
     Indication: INTRAOCULAR PRESSURE INCREASED
     Dosage: 2 GTT, BID
     Route: 047
     Dates: start: 201112, end: 20120730
  2. LUMIGAN [Concomitant]

REACTIONS (2)
  - Eyelid margin crusting [Unknown]
  - Eye irritation [Unknown]
